FAERS Safety Report 8207578-0 (Version None)
Quarter: 2012Q1

REPORT INFORMATION
  Report Type: 
  Country: None (occurrence: None)
  Receive Date: 20120314
  Receipt Date: 20120308
  Transmission Date: 20120608
  Serious: Yes (Life-Threatening, Hospitalization, Other)
  Sender: FDA-Public Use
  Company Number: GB-TEVA-327353ISR

PATIENT
  Sex: Female

DRUGS (8)
  1. WARFARIN SODIUM [Suspect]
  2. ENALAPRIL MALEATE [Concomitant]
     Indication: HYPERTENSION
     Dosage: 20 MILLIGRAM; LONG TERM. ONGOING.
     Route: 048
  3. RIVASTIGMINE [Suspect]
     Route: 048
     Dates: start: 20111205
  4. ATENOLOL [Concomitant]
     Indication: HYPERTENSION
     Dosage: LONG TERM. ONGOING.
     Route: 048
  5. FLUDROCORTISONE ACETATE [Concomitant]
     Indication: ADDISON'S DISEASE
     Dosage: .1 MILLIGRAM; IN THE MORNING. LONG TERM. ONGOING.
     Route: 048
  6. HYDROCORTISONE [Concomitant]
     Indication: ADDISON'S DISEASE
     Dosage: 25 MILLIGRAM; 15MG IN THE MORNING, 10MG AT NIGHT. LONG TERM. ONGOING.
     Route: 048
  7. AMLODIPINE [Concomitant]
     Indication: HYPERTENSION
     Dosage: LONG TERM. ONGOING
     Route: 048
  8. ATORVASTATIN [Concomitant]
     Indication: BLOOD CHOLESTEROL
     Dosage: LONG TERM. ONGOING.
     Route: 048

REACTIONS (3)
  - ABDOMINAL WALL HAEMORRHAGE [None]
  - DRUG INTERACTION [None]
  - INTERNATIONAL NORMALISED RATIO INCREASED [None]
